FAERS Safety Report 20255133 (Version 1)
Quarter: 2021Q4

REPORT INFORMATION
  Report Type: Spontaneous
  Country: CO (occurrence: CO)
  Receive Date: 20211230
  Receipt Date: 20211230
  Transmission Date: 20220303
  Serious: Yes (Hospitalization)
  Sender: FDA-Public Use
  Company Number: CO-PFIZER INC-202101835822

PATIENT
  Age: 74 Year
  Sex: Male

DRUGS (1)
  1. DOXAZOSIN MESYLATE [Suspect]
     Active Substance: DOXAZOSIN MESYLATE
     Indication: Prostate examination
     Dosage: 4 MG, UNSPECIFIED FREQUENCY
     Route: 048
     Dates: start: 20210923

REACTIONS (3)
  - Calculus bladder [Recovering/Resolving]
  - Dysuria [Recovering/Resolving]
  - Off label use [Unknown]

NARRATIVE: CASE EVENT DATE: 20211115
